FAERS Safety Report 15395835 (Version 2)
Quarter: 2019Q1

REPORT INFORMATION
  Report Type: Spontaneous
  Country: LV (occurrence: LV)
  Receive Date: 20180918
  Receipt Date: 20190228
  Transmission Date: 20190417
  Serious: No
  Sender: FDA-Public Use
  Company Number: LV-UCBSA-2018042295

PATIENT
  Sex: Female

DRUGS (6)
  1. LEVOCETIRIZINE [Suspect]
     Active Substance: LEVOCETIRIZINE
     Indication: OFF LABEL USE
  2. OMALIZUMAB. [Concomitant]
     Active Substance: OMALIZUMAB
     Indication: CHRONIC SPONTANEOUS URTICARIA
     Dosage: 300 MG, CYCLIC, 1X IN 4 WEEKS
     Route: 058
     Dates: start: 20160610, end: 20170101
  3. OMALIZUMAB. [Concomitant]
     Active Substance: OMALIZUMAB
     Indication: ANGIOEDEMA
     Dosage: 150 MG, UNK
     Route: 058
     Dates: start: 20160517
  4. LEVOCETIRIZINE [Suspect]
     Active Substance: LEVOCETIRIZINE
     Indication: ANGIOEDEMA
  5. METHYLPREDISOLONE [Concomitant]
     Active Substance: METHYLPREDNISOLONE
     Indication: PRODUCT USED FOR UNKNOWN INDICATION
     Dosage: 16 MG, 1X/DAY
     Dates: end: 20160712
  6. LEVOCETIRIZINE [Suspect]
     Active Substance: LEVOCETIRIZINE
     Indication: CHRONIC SPONTANEOUS URTICARIA
     Dosage: 5 MG, ONCE DAILY (QD)

REACTIONS (1)
  - No adverse event [Unknown]
